FAERS Safety Report 21088829 (Version 1)
Quarter: 2022Q3

REPORT INFORMATION
  Report Type: Spontaneous
  Country: CA (occurrence: CA)
  Receive Date: 20220715
  Receipt Date: 20220715
  Transmission Date: 20221027
  Serious: Yes (Other)
  Sender: FDA-Public Use
  Company Number: CA-SAMSUNG BIOEPIS-SB-2021-20040

PATIENT
  Age: 39 Year
  Sex: Female
  Weight: 61 kg

DRUGS (7)
  1. INFLIXIMAB [Suspect]
     Active Substance: INFLIXIMAB
     Indication: Crohn^s disease
     Route: 042
  2. ASACOL [Concomitant]
     Active Substance: MESALAMINE
     Indication: Product used for unknown indication
     Dosage: UNKNOWN TABLET (ENTERIC COATED)
     Route: 048
  3. DOMPERIDONE [Concomitant]
     Active Substance: DOMPERIDONE
     Indication: Product used for unknown indication
     Dosage: UNKNOWN
     Route: 048
  4. PANTOPRAZOLE SODIUM [Concomitant]
     Active Substance: PANTOPRAZOLE SODIUM
     Indication: Product used for unknown indication
     Dosage: UNKNOWN
     Route: 048
  5. PREDNISONE [Concomitant]
     Active Substance: PREDNISONE
     Indication: Product used for unknown indication
     Dosage: UNKNOWN
     Route: 065
  6. SOLU-MEDROL [Concomitant]
     Active Substance: METHYLPREDNISOLONE SODIUM SUCCINATE
     Indication: Product used for unknown indication
     Dosage: UNKNOWN
     Route: 065
  7. XARELTO [Concomitant]
     Active Substance: RIVAROXABAN
     Indication: Thrombosis prophylaxis
     Dosage: UNKNOWN
     Route: 065

REACTIONS (15)
  - Aphthous ulcer [Not Recovered/Not Resolved]
  - Arthralgia [Not Recovered/Not Resolved]
  - COVID-19 [Not Recovered/Not Resolved]
  - Condition aggravated [Not Recovered/Not Resolved]
  - Dyspepsia [Not Recovered/Not Resolved]
  - Fatigue [Not Recovered/Not Resolved]
  - Hypersomnia [Not Recovered/Not Resolved]
  - Illness [Not Recovered/Not Resolved]
  - Malaise [Not Recovered/Not Resolved]
  - Mouth ulceration [Not Recovered/Not Resolved]
  - Pain [Not Recovered/Not Resolved]
  - Weight increased [Not Recovered/Not Resolved]
  - Inappropriate schedule of product administration [Not Recovered/Not Resolved]
  - Intentional product use issue [Not Recovered/Not Resolved]
  - Off label use [Not Recovered/Not Resolved]
